FAERS Safety Report 9676293 (Version 2)
Quarter: 2013Q4

REPORT INFORMATION
  Report Type: Spontaneous
  Country: FR (occurrence: FR)
  Receive Date: 20131107
  Receipt Date: 20131107
  Transmission Date: 20140711
  Serious: Yes (Other)
  Sender: FDA-Public Use
  Company Number: FR-AMGEN-FRASP2013009447

PATIENT
  Age: 41 Year
  Sex: Female

DRUGS (9)
  1. MIMPARA [Suspect]
     Indication: PRODUCT USED FOR UNKNOWN INDICATION
     Dosage: UNK
     Route: 065
     Dates: start: 20121019, end: 20121206
  2. LASILIX                            /00032601/ [Concomitant]
     Dosage: 125 MG, UNK
  3. BICARBONATE [Concomitant]
     Dosage: 2 MG, UNK
  4. UVEDOSE [Concomitant]
     Dosage: UNK UNK, QMO
  5. RENVELA [Concomitant]
  6. INEXIUM                            /01479302/ [Concomitant]
  7. CACIT                              /00944201/ [Concomitant]
  8. KAYEXALATE [Concomitant]
     Dosage: 1 MEASURED SPOONFUL PER WEEK
  9. EMLA                               /00675501/ [Concomitant]
     Dosage: UNK UNK, Q3WK

REACTIONS (3)
  - Caesarean section [Unknown]
  - Sepsis [Unknown]
  - Polyhydramnios [Unknown]
